FAERS Safety Report 20217213 (Version 1)
Quarter: 2021Q4

REPORT INFORMATION
  Report Type: Other
  Country: None (occurrence: IN)
  Receive Date: 20211222
  Receipt Date: 20211222
  Transmission Date: 20220303
  Serious: Yes (Hospitalization, Other)
  Sender: FDA-Public Use
  Company Number: IN-YoungTech Pharmaceuticals, Inc.-2123272

PATIENT
  Age: 2 Month
  Sex: Male
  Weight: 5 kg

DRUGS (6)
  1. METOPROLOL TARTRATE [Suspect]
     Active Substance: METOPROLOL TARTRATE
     Indication: Tachyarrhythmia
     Route: 040
  2. AMIODARONE HYDROCHLORIDE [Suspect]
     Active Substance: AMIODARONE HYDROCHLORIDE
     Route: 065
  3. FUROSEMIDE [Suspect]
     Active Substance: FUROSEMIDE
     Route: 065
  4. MILRINONE [Suspect]
     Active Substance: MILRINONE
     Route: 065
  5. SOTALOL [Suspect]
     Active Substance: SOTALOL
     Route: 065
  6. DIGOXIN [Concomitant]
     Active Substance: DIGOXIN
     Route: 042

REACTIONS (1)
  - Drug ineffective [Unknown]
